FAERS Safety Report 6039288-2 (Version None)
Quarter: 2009Q1

REPORT INFORMATION
  Report Type: 
  Country: None (occurrence: None)
  Receive Date: 20090115
  Receipt Date: 20090113
  Transmission Date: 20090719
  Serious: Yes (Life-Threatening, Other)
  Sender: FDA-Public Use
  Company Number: PHHY2009GB01244

PATIENT
  Age: 79 Year
  Sex: Female

DRUGS (9)
  1. VALSARTAN [Suspect]
     Dosage: 80 MG, QD
  2. AMLODIPINE [Suspect]
     Dosage: 5 MG DAILY
     Route: 048
  3. ASPIRIN [Suspect]
     Dosage: 75 MG
     Route: 048
  4. ATORVASTATIN CALCIUM [Suspect]
     Dosage: 10 MG
     Route: 048
  5. LANSOPRAZOLE [Suspect]
     Dosage: 30 MG DAILY
     Route: 048
  6. RANITIDINE [Suspect]
     Dosage: 300 MG
     Route: 048
  7. SERETIDE ^ALLEN + HANBURYS LTD^ [Suspect]
     Indication: ASTHMA
     Dosage: 4 DF
  8. TEMAZEPAM [Suspect]
     Dosage: 20 MG
     Route: 048
  9. VENTOLIN [Suspect]
     Indication: ASTHMA
     Dosage: 800 MCG

REACTIONS (2)
  - ASTHMA [None]
  - LOWER RESPIRATORY TRACT INFECTION [None]
